FAERS Safety Report 22245502 (Version 1)
Quarter: 2023Q2

REPORT INFORMATION
  Report Type: Spontaneous
  Country: JP (occurrence: JP)
  Receive Date: 20230424
  Receipt Date: 20230424
  Transmission Date: 20230722
  Serious: Yes (Other)
  Sender: FDA-Public Use
  Company Number: JP-002147023-NVSJ2022JP276960

PATIENT
  Age: 1 Year
  Sex: Female
  Weight: 10.4 kg

DRUGS (4)
  1. CYCLOSPORINE [Suspect]
     Active Substance: CYCLOSPORINE
     Indication: Kawasaki^s disease
     Dosage: 3 MG/KG
     Route: 042
     Dates: start: 20120309, end: 20120310
  2. CYCLOSPORINE [Suspect]
     Active Substance: CYCLOSPORINE
     Dosage: 2.7 MG
     Route: 042
     Dates: start: 20120310, end: 20120311
  3. CYCLOSPORINE [Suspect]
     Active Substance: CYCLOSPORINE
     Dosage: 2.4 MG
     Route: 042
     Dates: start: 20120311, end: 20120314
  4. ASPIRIN [Concomitant]
     Active Substance: ASPIRIN
     Indication: Kawasaki^s disease
     Dosage: 100 MG, TID
     Route: 048
     Dates: start: 20120306, end: 20120316

REACTIONS (2)
  - Hypertension [Recovered/Resolved]
  - Product use in unapproved indication [Unknown]

NARRATIVE: CASE EVENT DATE: 20120310
